FAERS Safety Report 16931911 (Version 5)
Quarter: 2020Q1

REPORT INFORMATION
  Report Type: Spontaneous
  Country: US (occurrence: US)
  Receive Date: 20191017
  Receipt Date: 20200324
  Transmission Date: 20200409
  Serious: Yes (Hospitalization, Other)
  Sender: FDA-Public Use
  Company Number: US-SHIRE-US201934749

PATIENT

DRUGS (4)
  1. NATPARA (PARATHYROID HORMONE) [Suspect]
     Active Substance: PARATHYROID HORMONE
     Indication: CONGENITAL HYPOPARATHYROIDISM
     Dosage: 75 MICROGRAM, 1X/DAY:QD
     Route: 058
  2. CALCIUM [Concomitant]
     Active Substance: CALCIUM
     Indication: BLOOD CALCIUM ABNORMAL
  3. CALCITRIOL. [Concomitant]
     Active Substance: CALCITRIOL
     Indication: BLOOD CALCIUM ABNORMAL
  4. NATPARA (PARATHYROID HORMONE) [Suspect]
     Active Substance: PARATHYROID HORMONE
     Indication: HYPOPARATHYROIDISM
     Dosage: 50 MICROGRAM, 1X/DAY:QD
     Route: 058

REACTIONS (5)
  - Recalled product [Unknown]
  - Hypocalcaemia [Unknown]
  - Electrolyte imbalance [Unknown]
  - Blood calcium abnormal [Unknown]
  - Blood test abnormal [Unknown]
